FAERS Safety Report 8195602-3 (Version None)
Quarter: 2012Q1

REPORT INFORMATION
  Report Type: 
  Country: None (occurrence: None)
  Receive Date: 20120308
  Receipt Date: 20120222
  Transmission Date: 20120608
  Serious: Yes (Other)
  Sender: FDA-Public Use
  Company Number: CHPA2012US003589

PATIENT
  Age: 76 Year
  Sex: Female

DRUGS (1)
  1. EXCEDRIN EXTRA STRENGTH TABLETS [Suspect]
     Indication: MIGRAINE
     Dosage: 0.5 DF, PRN
     Route: 048
     Dates: start: 19620101

REACTIONS (4)
  - HYPERTENSION [None]
  - ASTHMA [None]
  - UNDERDOSE [None]
  - NASOPHARYNGITIS [None]
